FAERS Safety Report 5616575-0 (Version None)
Quarter: 2008Q1

REPORT INFORMATION
  Report Type: 
  Country: None (occurrence: None)
  Receive Date: 20080207
  Receipt Date: 20070803
  Transmission Date: 20080703
  Serious: No
  Sender: FDA-Public Use
  Company Number: A0668153A

PATIENT
  Age: 49 Year
  Sex: Male

DRUGS (3)
  1. PAXIL CR [Suspect]
     Indication: DEPRESSION
     Dosage: 62.5MG AT NIGHT
     Route: 048
     Dates: start: 20070711
  2. TRAZODONE HCL [Concomitant]
  3. ATIVAN [Concomitant]

REACTIONS (1)
  - DRUG INEFFECTIVE [None]
